APPROVED DRUG PRODUCT: CYCLOSPORINE
Active Ingredient: CYCLOSPORINE
Strength: 0.05%
Dosage Form/Route: EMULSION;OPHTHALMIC
Application: A203880 | Product #001 | TE Code: AB
Applicant: TEVA PHARMACEUTICALS USA INC
Approved: Dec 14, 2023 | RLD: No | RS: No | Type: RX